FAERS Safety Report 15540305 (Version 1)
Quarter: 2018Q4

REPORT INFORMATION
  Report Type: Spontaneous
  Country: US (occurrence: US)
  Receive Date: 20181016
  Receipt Date: 20181016
  Transmission Date: 20190205
  Serious: Yes (Life-Threatening)
  Sender: FDA-Public Use
  Company Number: None

PATIENT
  Age: 61 Year
  Sex: Female
  Weight: 114.31 kg

DRUGS (15)
  1. PROTONIX [Concomitant]
     Active Substance: PANTOPRAZOLE SODIUM
  2. BUSPAR [Concomitant]
     Active Substance: BUSPIRONE HYDROCHLORIDE
  3. ZOFRAN [Concomitant]
     Active Substance: ONDANSETRON HYDROCHLORIDE
  4. LASIX [Concomitant]
     Active Substance: FUROSEMIDE
  5. FLONASE [Concomitant]
     Active Substance: FLUTICASONE PROPIONATE
  6. NITROGLYCERIN. [Concomitant]
     Active Substance: NITROGLYCERIN
  7. CEFTIN [Concomitant]
     Active Substance: CEFUROXIME AXETIL
  8. HFA INHALER [Concomitant]
  9. PREDNISONE. [Concomitant]
     Active Substance: PREDNISONE
  10. ULTRAM [Concomitant]
     Active Substance: TRAMADOL HYDROCHLORIDE
  11. HYDROXYZINE HCL 25MG TABS WHITE [Suspect]
     Active Substance: HYDROXYZINE HYDROCHLORIDE
     Indication: PRURITUS
     Dosage: ?          QUANTITY:1 DF DOSAGE FORM;?
     Route: 048
     Dates: start: 20180916, end: 20180916
  12. CAL-MAG-ZINC CHELATED [Concomitant]
  13. SINGULAIR [Concomitant]
     Active Substance: MONTELUKAST SODIUM
  14. TENORMIN [Concomitant]
     Active Substance: ATENOLOL
  15. ALBUTEROL. [Concomitant]
     Active Substance: ALBUTEROL

REACTIONS (2)
  - Dyspnoea [None]
  - Palpitations [None]

NARRATIVE: CASE EVENT DATE: 20180916
